FAERS Safety Report 5195752-X (Version None)
Quarter: 2007Q1

REPORT INFORMATION
  Report Type: 
  Country: None (occurrence: None)
  Receive Date: 20070102
  Receipt Date: 20061220
  Transmission Date: 20070707
  Serious: Yes (Other)
  Sender: FDA-Public Use
  Company Number: RO-ROCHE-475906

PATIENT
  Age: 45 Year
  Sex: Female

DRUGS (3)
  1. PEGASYS [Suspect]
     Dosage: FORM REPORTED AS PREFILLED SYRINGE (PFS).
     Route: 058
     Dates: start: 20060615, end: 20061115
  2. PEGASYS [Suspect]
     Route: 058
  3. COPEGUS [Concomitant]
     Route: 048
     Dates: start: 20060615, end: 20061115

REACTIONS (1)
  - HEPATIC NEOPLASM MALIGNANT [None]
